FAERS Safety Report 9947188 (Version 1)
Quarter: 2014Q1

REPORT INFORMATION
  Report Type: Report from Study
  Country: US (occurrence: US)
  Receive Date: 20140303
  Receipt Date: 20140303
  Transmission Date: 20141002
  Serious: No
  Sender: FDA-Public Use
  Company Number: US-ABBVIE-13P-163-1062411-00

PATIENT
  Sex: Male
  Weight: 102.15 kg

DRUGS (9)
  1. HUMIRA [Suspect]
     Indication: CROHN^S DISEASE
     Route: 058
     Dates: start: 201109
  2. REMICADE [Suspect]
     Indication: PRODUCT USED FOR UNKNOWN INDICATION
     Dates: start: 2001
  3. BYSTOLIC [Concomitant]
     Indication: CARDIAC DISORDER
  4. NEXIUM [Concomitant]
     Indication: GASTRIC DISORDER
  5. GLIPIZIDE XL [Concomitant]
     Indication: BLOOD GLUCOSE INCREASED
  6. ZOLOFT [Concomitant]
     Indication: PSYCHOTIC DISORDER
  7. LOPARAMIDE (LOMOTIL) [Concomitant]
     Indication: CROHN^S DISEASE
  8. TESTOSTERONE [Concomitant]
     Indication: BLOOD TESTOSTERONE DECREASED
     Dosage: MONTHLY INJECTION
  9. MULTIVITAMIN [Concomitant]
     Indication: ROUTINE HEALTH MAINTENANCE

REACTIONS (3)
  - Skin disorder [Not Recovered/Not Resolved]
  - Skin haemorrhage [Unknown]
  - Pain [Unknown]
